FAERS Safety Report 7981244-9 (Version None)
Quarter: 2011Q4

REPORT INFORMATION
  Report Type: 
  Country: None (occurrence: None)
  Receive Date: 20111215
  Receipt Date: 20111213
  Transmission Date: 20120403
  Serious: No
  Sender: FDA-Public Use
  Company Number: US-PFIZER INC-2011304630

PATIENT
  Sex: Female
  Weight: 63.039 kg

DRUGS (4)
  1. CRESTOR [Concomitant]
     Indication: BLOOD CHOLESTEROL ABNORMAL
     Dosage: 10 MG, DAILY
  2. CHANTIX [Suspect]
     Dosage: UNK
     Dates: start: 20100101, end: 20100101
  3. CHANTIX [Suspect]
     Indication: SMOKING CESSATION THERAPY
     Dosage: 0.5 MG, DAILY
     Dates: start: 20100101, end: 20100101
  4. XANAX [Concomitant]
     Dosage: 0.25 MG, DAILY

REACTIONS (1)
  - VITAMIN D DECREASED [None]
